FAERS Safety Report 10393048 (Version 2)
Quarter: 2015Q1

REPORT INFORMATION
  Report Type: Spontaneous
  Country: US (occurrence: US)
  Receive Date: 20140819
  Receipt Date: 20150213
  Transmission Date: 20150720
  Serious: Yes (Hospitalization)
  Sender: FDA-Public Use
  Company Number: US-BAYER-2014-123595

PATIENT
  Age: 30 Year
  Sex: Female
  Weight: 72.56 kg

DRUGS (2)
  1. NORVASC [Concomitant]
     Active Substance: AMLODIPINE BESYLATE
     Indication: HYPERTENSION
     Dosage: UNK
     Dates: start: 199803
  2. MIRENA [Suspect]
     Active Substance: LEVONORGESTREL
     Indication: CONTRACEPTION
     Dosage: 20 MCG/24HR, CONT
     Route: 015
     Dates: start: 20100108, end: 20120802

REACTIONS (5)
  - Abdominal pain lower [None]
  - Pelvic pain [None]
  - Embedded device [None]
  - Injury [None]
  - Device issue [None]

NARRATIVE: CASE EVENT DATE: 201004
